FAERS Safety Report 7745201 (Version 4)
Quarter: 2013Q4

REPORT INFORMATION
  Report Type: Spontaneous
  Country: US (occurrence: US)
  Receive Date: 20101231
  Receipt Date: 20131230
  Transmission Date: 20140711
  Serious: Yes (Other)
  Sender: FDA-Public Use
  Company Number: US-BAYER-2010-008989

PATIENT
  Age: 34 Year
  Sex: Female
  Weight: 67 kg

DRUGS (3)
  1. YASMIN [Suspect]
     Indication: ACNE
     Dosage: UNK
  2. YASMIN [Suspect]
     Indication: ACNE
     Dosage: UNK
  3. OMEPRAZOLE [Concomitant]
     Route: 048

REACTIONS (4)
  - Cholecystitis [None]
  - Injury [None]
  - Pain [None]
  - Abdominal pain [None]
